FAERS Safety Report 6678571-4 (Version None)
Quarter: 2010Q2

REPORT INFORMATION
  Report Type: 
  Country: None (occurrence: None)
  Receive Date: 20100409
  Receipt Date: 20100409
  Transmission Date: 20101027
  Serious: Yes (Hospitalization, Other)
  Sender: FDA-Public Use
  Company Number: None

PATIENT
  Sex: Male
  Weight: 70.7611 kg

DRUGS (2)
  1. CARBATROL [Suspect]
     Indication: EPILEPSY
     Dosage: 1300MG PER DAY PO
     Route: 048
     Dates: start: 19850110, end: 20090410
  2. DIVALPROEX SODIUM [Suspect]
     Indication: EPILEPSY
     Dosage: 2000MG PER DAY PO
     Route: 048
     Dates: start: 19850110, end: 20090410

REACTIONS (12)
  - APHASIA [None]
  - BALANCE DISORDER [None]
  - DEPRESSION [None]
  - DIPLOPIA [None]
  - FEELING ABNORMAL [None]
  - GRAND MAL CONVULSION [None]
  - MEMORY IMPAIRMENT [None]
  - PRODUCT SUBSTITUTION ISSUE [None]
  - READING DISORDER [None]
  - SPINAL FRACTURE [None]
  - TREMOR [None]
  - VISION BLURRED [None]
